FAERS Safety Report 9462215 (Version 1)
Quarter: 2013Q3

REPORT INFORMATION
  Report Type: Spontaneous
  Country: US (occurrence: US)
  Receive Date: 20130816
  Receipt Date: 20130816
  Transmission Date: 20140515
  Serious: Yes (Life-Threatening, Other)
  Sender: FDA-Public Use
  Company Number: US-GLAXOSMITHKLINE-A1029282A

PATIENT
  Age: 34 Year
  Sex: Female
  Weight: 58 kg

DRUGS (4)
  1. BENLYSTA [Suspect]
     Indication: SYSTEMIC LUPUS ERYTHEMATOSUS
     Dosage: 580MG EVERY 28 DAYS
     Route: 042
     Dates: start: 20130621
  2. PLAQUENIL [Concomitant]
  3. RITALIN [Concomitant]
  4. IBUPROFEN [Concomitant]

REACTIONS (10)
  - Anaphylactic reaction [Recovered/Resolved]
  - Laryngeal oedema [Recovered/Resolved]
  - Pruritus [Recovered/Resolved]
  - Bronchospasm [Recovered/Resolved]
  - Face oedema [Recovered/Resolved]
  - Hypoaesthesia oral [Recovered/Resolved]
  - Rash erythematous [Recovered/Resolved]
  - Rash pruritic [Recovered/Resolved]
  - Urticaria [Recovered/Resolved]
  - Rash [Recovered/Resolved]
